FAERS Safety Report 12469528 (Version 1)
Quarter: 2016Q2

REPORT INFORMATION
  Report Type: Spontaneous
  Country: US (occurrence: US)
  Receive Date: 20160615
  Receipt Date: 20160615
  Transmission Date: 20160815
  Serious: No
  Sender: FDA-Public Use
  Company Number: US-GALDERMA-US16001653

PATIENT
  Sex: Female

DRUGS (1)
  1. MIRVASO [Suspect]
     Active Substance: BRIMONIDINE TARTRATE
     Indication: ROSACEA
     Dosage: 0.33%
     Route: 061

REACTIONS (10)
  - Skin disorder [Unknown]
  - Pruritus [Unknown]
  - Dermatitis allergic [Unknown]
  - Erythema [Unknown]
  - Scab [Unknown]
  - Skin burning sensation [Unknown]
  - Rosacea [Unknown]
  - Swelling face [Unknown]
  - Activities of daily living impaired [Unknown]
  - Rash papular [Unknown]
